FAERS Safety Report 11039113 (Version 2)
Quarter: 2015Q2

REPORT INFORMATION
  Report Type: Spontaneous
  Country: CH (occurrence: CH)
  Receive Date: 20150416
  Receipt Date: 20150512
  Transmission Date: 20150821
  Serious: Yes (Death, Hospitalization)
  Sender: FDA-Public Use
  Company Number: CH-PFIZER INC-2012083814

PATIENT
  Age: 66 Year
  Sex: Female

DRUGS (14)
  1. METHOTREXATE SODIUM. [Interacting]
     Active Substance: METHOTREXATE SODIUM
     Indication: PERIPHERAL T-CELL LYMPHOMA UNSPECIFIED
     Dosage: 5500 MG, DURING 4 HOURS
     Route: 041
     Dates: start: 20120303, end: 20120303
  2. CLAMOXYL [Interacting]
     Active Substance: AMOXICILLIN\CLAVULANIC ACID
     Dosage: 1 G, 2X/DAY
     Route: 040
     Dates: start: 20120305
  3. ROCEPHIN [Suspect]
     Active Substance: CEFTRIAXONE SODIUM
     Indication: BACTERIAL INFECTION
     Dosage: 2 G, 1X/DAY
     Route: 040
     Dates: start: 20120229, end: 20120303
  4. CALCIUM FOLINATE [Concomitant]
     Active Substance: LEUCOVORIN CALCIUM
     Dosage: UNK
  5. DIPYRONE [Suspect]
     Active Substance: DIPYRONE
     Indication: PYREXIA
     Dosage: 4000 MG, DAILY
     Route: 040
     Dates: start: 20120229, end: 20120303
  6. LEUCOVORIN [Concomitant]
     Active Substance: LEUCOVORIN
     Dosage: 300 MG, 1 PER 6 HOURS
     Route: 040
     Dates: start: 20120304
  7. CIPRALEX [Concomitant]
     Active Substance: ESCITALOPRAM OXALATE
     Dosage: 5 MG, 1X/DAY (10MG 1/2-0-0)
     Route: 048
     Dates: end: 20120229
  8. PANTOZOL [Concomitant]
     Active Substance: PANTOPRAZOLE SODIUM
     Dosage: 40 MG, 1X/DAY
     Route: 048
     Dates: end: 20120229
  9. ESOMEP [Interacting]
     Active Substance: ESOMEPRAZOLE
     Dosage: 40 MG, 1X/DAY
     Route: 040
     Dates: start: 20120229
  10. ZOVIRAX [Suspect]
     Active Substance: ACYCLOVIR
     Indication: ENCEPHALITIS VIRAL
     Dosage: 750 MG, 1 PER 8 HOURS
     Route: 040
     Dates: start: 20120229, end: 20120304
  11. FRAGMIN [Suspect]
     Active Substance: DALTEPARIN SODIUM
     Indication: THROMBOSIS PROPHYLAXIS
     Dosage: 5000 IU, 1X/DAY
     Route: 058
     Dates: start: 20120229, end: 20120304
  12. CLAMOXYL [Interacting]
     Active Substance: AMOXICILLIN\CLAVULANIC ACID
     Indication: BACTERIAL INFECTION
     Dosage: 2 G, 1 PER 4 HOURS
     Route: 040
     Dates: start: 20120229, end: 20120304
  13. SPIRICORT [Concomitant]
     Active Substance: PREDNISOLONE
     Dosage: 100 MG, 1X/DAY (50 MG 2-0-0)
     Route: 048
     Dates: end: 20120229
  14. GLUCARPIDASE [Concomitant]
     Active Substance: GLUCARPIDASE
     Dosage: UNK

REACTIONS (7)
  - Drug level increased [Fatal]
  - Clostridium difficile colitis [Fatal]
  - Acute kidney injury [Fatal]
  - Drug interaction [Fatal]
  - Sepsis [Fatal]
  - Liver injury [Fatal]
  - Pancytopenia [Fatal]

NARRATIVE: CASE EVENT DATE: 20120303
